FAERS Safety Report 9017450 (Version 1)
Quarter: 2013Q1

REPORT INFORMATION
  Report Type: Spontaneous
  Country: US (occurrence: US)
  Receive Date: 20130117
  Receipt Date: 20130117
  Transmission Date: 20140127
  Serious: No
  Sender: FDA-Public Use
  Company Number: US-B.I. PHARMACEUTICALS,INC./RIDGEFIELD-2013-BI-00285BP

PATIENT
  Age: 78 Year
  Sex: Female

DRUGS (3)
  1. SPIRIVA [Suspect]
     Indication: CHRONIC OBSTRUCTIVE PULMONARY DISEASE
     Dosage: 18 MCG
     Route: 055
  2. SEREVENT INHALER [Concomitant]
     Indication: ASTHMA
     Dosage: 4 PUF
     Route: 055
  3. VENTOLIN INHALER [Concomitant]
     Indication: ASTHMA
     Dosage: 12 PUF
     Route: 055

REACTIONS (1)
  - Dyspnoea [Not Recovered/Not Resolved]
